FAERS Safety Report 20335273 (Version 2)
Quarter: 2022Q1

REPORT INFORMATION
  Report Type: Report from Study
  Country: US (occurrence: US)
  Receive Date: 20220114
  Receipt Date: 20220125
  Transmission Date: 20220423
  Serious: Yes (Life-Threatening, Other)
  Sender: FDA-Public Use
  Company Number: US-NOVARTISPH-NVSC2022US004420

PATIENT
  Age: 73 Year
  Sex: Male

DRUGS (2)
  1. ENTRESTO [Suspect]
     Active Substance: SACUBITRIL\VALSARTAN
     Indication: Cardiac failure
     Dosage: 1 DOSAGE FORM, BID (24/26 MG)
     Route: 048
     Dates: start: 202111, end: 20220106
  2. LISINOPRIL [Suspect]
     Active Substance: LISINOPRIL
     Indication: Product used for unknown indication
     Dosage: UNK
     Route: 065

REACTIONS (15)
  - Near death experience [Unknown]
  - Myalgia [Recovered/Resolved]
  - Mobility decreased [Recovered/Resolved]
  - Myositis [Recovered/Resolved]
  - Musculoskeletal stiffness [Recovered/Resolved]
  - Cerebrovascular accident [Recovered/Resolved]
  - Hallucination [Recovered/Resolved]
  - Confusional state [Recovered/Resolved]
  - Disturbance in attention [Recovered/Resolved]
  - Migraine [Recovered/Resolved]
  - Photopsia [Recovered/Resolved]
  - Visual impairment [Recovered/Resolved]
  - Fatigue [Recovered/Resolved]
  - Pruritus [Recovered/Resolved]
  - Contraindicated product administered [Unknown]

NARRATIVE: CASE EVENT DATE: 20211201
